FAERS Safety Report 16776093 (Version 1)
Quarter: 2019Q3

REPORT INFORMATION
  Report Type: Spontaneous
  Country: JP (occurrence: JP)
  Receive Date: 20190905
  Receipt Date: 20190905
  Transmission Date: 20191005
  Serious: Yes (Other)
  Sender: FDA-Public Use
  Company Number: JP-PFIZER INC-2019380275

PATIENT

DRUGS (2)
  1. BELSOMRA [Suspect]
     Active Substance: SUVOREXANT
  2. LYRICA [Suspect]
     Active Substance: PREGABALIN

REACTIONS (1)
  - Hepatitis [Recovered/Resolved]
